FAERS Safety Report 4485391-8 (Version None)
Quarter: 2004Q4

REPORT INFORMATION
  Report Type: 
  Country: None (occurrence: None)
  Receive Date: 20041025
  Receipt Date: 20041025
  Transmission Date: 20050328
  Serious: No
  Sender: FDA-Public Use
  Company Number: None

PATIENT
  Age: 65 Year
  Sex: Male
  Weight: 81.6 kg

DRUGS (5)
  1. RITUXIMAB [Suspect]
     Indication: LYMPHOMA
     Dosage: 730 MG IV INFUSION STGARTED AT 114 MG/HR
     Route: 042
     Dates: start: 20040916, end: 20041007
  2. DEXAMETHASONE [Concomitant]
  3. LORATADINE [Concomitant]
  4. ACETAMINOPHEN [Concomitant]
  5. RANITIDINE [Concomitant]

REACTIONS (4)
  - BRONCHOSPASM [None]
  - CHEST PAIN [None]
  - HYPOTENSION [None]
  - URTICARIA [None]
